FAERS Safety Report 16408918 (Version 1)
Quarter: 2019Q2

REPORT INFORMATION
  Report Type: Other
  Country: IT (occurrence: IT)
  Receive Date: 20190610
  Receipt Date: 20190610
  Transmission Date: 20190711
  Serious: Yes (Hospitalization)
  Sender: FDA-Public Use
  Company Number: IT-APOTEX-2019AP016099

PATIENT
  Age: 47 Year
  Sex: Male

DRUGS (3)
  1. TACHIPIRINA [Concomitant]
     Active Substance: ACETAMINOPHEN
     Indication: HYPERPYREXIA
     Dosage: UNK
     Route: 065
  2. NIMESULIDE [Concomitant]
     Active Substance: NIMESULIDE
     Indication: HYPERPYREXIA
     Dosage: UNK
     Route: 065
  3. CLARITHROMYCIN. [Suspect]
     Active Substance: CLARITHROMYCIN
     Indication: HYPERPYREXIA
     Dosage: UNK
     Route: 048
     Dates: start: 20170724

REACTIONS (2)
  - Lip oedema [Recovered/Resolved]
  - Drug hypersensitivity [Recovered/Resolved]

NARRATIVE: CASE EVENT DATE: 20170724
